FAERS Safety Report 22607079 (Version 2)
Quarter: 2023Q2

REPORT INFORMATION
  Report Type: Spontaneous
  Country: ES (occurrence: ES)
  Receive Date: 20230615
  Receipt Date: 20230626
  Transmission Date: 20230722
  Serious: Yes (Hospitalization, Other)
  Sender: FDA-Public Use
  Company Number: ES-INSUD PHARMA-2306ES03812

PATIENT

DRUGS (2)
  1. NUVESSA [Suspect]
     Active Substance: METRONIDAZOLE
     Indication: Osteomyelitis
     Dosage: 500 MILLIGRAM, Q8H
     Route: 065
  2. CIPROFLOXACIN [Concomitant]
     Active Substance: CIPROFLOXACIN
     Indication: Osteomyelitis
     Dosage: 500 MG EVERY 12 HOURS

REACTIONS (6)
  - Neurotoxicity [Recovered/Resolved]
  - Dysphagia [Recovered/Resolved]
  - Dysarthria [Recovered/Resolved]
  - Ataxia [Recovered/Resolved]
  - Dysmetria [Recovered/Resolved]
  - Stress cardiomyopathy [Recovering/Resolving]
